FAERS Safety Report 9803852 (Version 7)
Quarter: 2014Q2

REPORT INFORMATION
  Report Type: Report from Study
  Country: GB (occurrence: GB)
  Receive Date: 20140108
  Receipt Date: 20140401
  Transmission Date: 20141212
  Serious: Yes (Death, Life-Threatening, Hospitalization)
  Sender: FDA-Public Use
  Company Number: GB-ROCHE-1327867

PATIENT
  Age: 63 Year
  Sex: Female
  Weight: 96.2 kg

DRUGS (13)
  1. PERTUZUMAB [Suspect]
     Indication: BREAST CANCER
     Dosage: LOADING DOSE: LAST DOSE PRIOR TO SAE WAS ON 23/DEC/2013
     Route: 042
     Dates: start: 20131223
  2. TRASTUZUMAB [Suspect]
     Indication: BREAST CANCER
     Dosage: LOADING DOSE: LAST DOSE PRIOR TO SAE WAS ON 23/DEC/2013
     Route: 042
     Dates: start: 20131223
  3. PACLITAXEL [Suspect]
     Indication: BREAST CANCER
     Route: 042
     Dates: start: 20131223, end: 20131230
  4. FRESUBIN [Concomitant]
  5. GABAPENTIN [Concomitant]
     Route: 065
     Dates: start: 20131204
  6. MORPHINE SULPHATE SYRUP [Concomitant]
     Route: 065
     Dates: start: 20131204
  7. OMEPRAZOLE [Concomitant]
     Route: 065
     Dates: start: 20131204
  8. ORAMORPH [Concomitant]
     Route: 065
     Dates: start: 20131204
  9. CALCIUM CARBONATE [Concomitant]
     Dosage: 3 TABS
     Route: 065
     Dates: start: 20131220, end: 20140116
  10. HALOPERIDOL [Concomitant]
     Route: 065
  11. CYCLIZINE [Concomitant]
     Route: 048
  12. LOPERAMIDE [Concomitant]
     Route: 065
  13. SANDO-K [Concomitant]
     Route: 065

REACTIONS (1)
  - Diarrhoea [Fatal]
